FAERS Safety Report 19291099 (Version 1)
Quarter: 2021Q2

REPORT INFORMATION
  Report Type: Spontaneous
  Country: US (occurrence: US)
  Receive Date: 20210523
  Receipt Date: 20210523
  Transmission Date: 20210717
  Serious: No
  Sender: FDA-Public Use
  Company Number: US-CELGENEUS-USA-20210503257

PATIENT
  Sex: Female
  Weight: 61.29 kg

DRUGS (6)
  1. REVLIMID [Suspect]
     Active Substance: LENALIDOMIDE
     Dosage: 3.75 MILLIGRAM
     Route: 048
     Dates: start: 201811
  2. REVLIMID [Suspect]
     Active Substance: LENALIDOMIDE
     Dosage: 3.75 MILLIGRAM
     Route: 048
     Dates: start: 201905
  3. REVLIMID [Suspect]
     Active Substance: LENALIDOMIDE
     Dosage: 3.75 MILLIGRAM
     Route: 048
     Dates: start: 201909
  4. REVLIMID [Suspect]
     Active Substance: LENALIDOMIDE
     Dosage: 3.75 MILLIGRAM
     Route: 048
     Dates: start: 202009
  5. REVLIMID [Suspect]
     Active Substance: LENALIDOMIDE
     Dosage: 3.75 MILLIGRAM
     Route: 048
     Dates: start: 201906
  6. REVLIMID [Suspect]
     Active Substance: LENALIDOMIDE
     Indication: PLASMA CELL MYELOMA IN REMISSION
     Dosage: 3.75 MILLIGRAM
     Route: 048
     Dates: start: 201803

REACTIONS (2)
  - Decreased appetite [Unknown]
  - Ageusia [Unknown]
